FAERS Safety Report 8231455-2 (Version None)
Quarter: 2012Q1

REPORT INFORMATION
  Report Type: 
  Country: None (occurrence: None)
  Receive Date: 20120323
  Receipt Date: 20120320
  Transmission Date: 20120608
  Serious: Yes (Life-Threatening, Hospitalization)
  Sender: FDA-Public Use
  Company Number: LB-B.I. PHARMACEUTICALS,INC./RIDGEFIELD-2012-CS-00339AE

PATIENT
  Age: 76 Year
  Sex: Female

DRUGS (8)
  1. CORDARONE [Concomitant]
  2. PRADAXA [Suspect]
     Indication: CEREBROVASCULAR ACCIDENT PROPHYLAXIS
     Dosage: 150 MG
     Route: 048
     Dates: start: 20110316, end: 20120316
  3. ACTONEL [Concomitant]
  4. COAPPROVEL 300/12.5 [Concomitant]
  5. JANUVIA [Concomitant]
  6. PARIET 20 [Concomitant]
  7. LIPONORM 20 [Concomitant]
  8. DIAMICRON 100 [Concomitant]

REACTIONS (5)
  - DYSPNOEA [None]
  - INTERNATIONAL NORMALISED RATIO INCREASED [None]
  - GENERAL PHYSICAL HEALTH DETERIORATION [None]
  - RENAL IMPAIRMENT [None]
  - COAGULATION FACTOR V LEVEL DECREASED [None]
